FAERS Safety Report 23747547 (Version 1)
Quarter: 2024Q2

REPORT INFORMATION
  Report Type: Spontaneous
  Country: US (occurrence: US)
  Receive Date: 20240416
  Receipt Date: 20240416
  Transmission Date: 20240716
  Serious: No
  Sender: FDA-Public Use
  Company Number: US-TAKEDA-2024TUS035125

PATIENT
  Sex: Female
  Weight: 20 kg

DRUGS (1)
  1. TAKHZYRO [Suspect]
     Active Substance: LANADELUMAB-FLYO
     Indication: Hereditary angioedema
     Dosage: 1 MILLILITER, Q2WEEKS
     Route: 042

REACTIONS (4)
  - Product use issue [Unknown]
  - Product availability issue [Unknown]
  - Product distribution issue [Unknown]
  - No adverse event [Unknown]
